FAERS Safety Report 23310288 (Version 5)
Quarter: 2025Q1

REPORT INFORMATION
  Report Type: Spontaneous
  Country: US (occurrence: US)
  Receive Date: 20231218
  Receipt Date: 20250213
  Transmission Date: 20250408
  Serious: No
  Sender: PFIZER
  Company Number: US-PFIZER INC-202300337596

PATIENT
  Age: 87 Year
  Sex: Female
  Weight: 68.04 kg

DRUGS (2)
  1. PREMARIN [Suspect]
     Active Substance: ESTROGENS, CONJUGATED
     Dosage: UNK, 2X/WEEK
  2. PERMIN [Concomitant]

REACTIONS (3)
  - Productive cough [Unknown]
  - Illness [Unknown]
  - Expired product administered [Unknown]
